FAERS Safety Report 19264820 (Version 1)
Quarter: 2021Q2

REPORT INFORMATION
  Report Type: Report from Study
  Country: NL (occurrence: NL)
  Receive Date: 20210517
  Receipt Date: 20210517
  Transmission Date: 20210717
  Serious: Yes (Other)
  Sender: FDA-Public Use
  Company Number: NL-AUROBINDO-AUR-APL-2019-077763

PATIENT
  Age: 17 Year
  Sex: Female
  Weight: 63.4 kg

DRUGS (3)
  1. IMATINIB. [Suspect]
     Active Substance: IMATINIB MESYLATE
     Indication: CHRONIC MYELOID LEUKAEMIA
     Dosage: 600 MILLIGRAM
     Route: 048
  2. CICLOSPORINE [Interacting]
     Active Substance: CYCLOSPORINE
     Indication: CHRONIC MYELOID LEUKAEMIA
     Dosage: 225 MILLIGRAM (MEAN DAILY DOSAGE OF 225 MG (200?250))
     Route: 048
  3. CICLOSPORINE [Interacting]
     Active Substance: CYCLOSPORINE
     Dosage: 160 MILLIGRAM (MEAN DAILY DOSAGE OF 160 MG (125?175))
     Route: 048

REACTIONS (2)
  - Drug interaction [Unknown]
  - Drug level increased [Unknown]
